FAERS Safety Report 20963507 (Version 1)
Quarter: 2022Q2

REPORT INFORMATION
  Report Type: Spontaneous
  Country: IT (occurrence: IT)
  Receive Date: 20220615
  Receipt Date: 20220615
  Transmission Date: 20220720
  Serious: Yes (Other)
  Sender: FDA-Public Use
  Company Number: IT-KYOWAKIRIN-2022BKK009013

PATIENT

DRUGS (2)
  1. POTELIGEO [Suspect]
     Active Substance: MOGAMULIZUMAB-KPKC
     Indication: Cutaneous T-cell lymphoma
     Dosage: UNK
     Route: 065
     Dates: start: 20210826
  2. Psoralen Ultra-Violet A [Concomitant]
     Indication: Cutaneous T-cell lymphoma
     Dosage: UNK
     Route: 065
     Dates: start: 20220606

REACTIONS (7)
  - Dermatitis exfoliative generalised [Unknown]
  - Therapy partial responder [Unknown]
  - Therapy change [Unknown]
  - Skin exfoliation [Recovering/Resolving]
  - Erythema [Recovering/Resolving]
  - Pruritus [Not Recovered/Not Resolved]
  - Skin exfoliation [Unknown]

NARRATIVE: CASE EVENT DATE: 20220501
